FAERS Safety Report 9046956 (Version 1)
Quarter: 2013Q1

REPORT INFORMATION
  Report Type: Spontaneous
  Country: US (occurrence: None)
  Receive Date: 20130129
  Receipt Date: 20130129
  Transmission Date: 20140127
  Serious: Yes (Death, Life-Threatening, Hospitalization, Disabling, Congenital Anomaly, Other)
  Sender: FDA-Public Use
  Company Number: None

PATIENT
  Age: 27 Year
  Sex: Female
  Weight: 65.77 kg

DRUGS (1)
  1. CYMBALTA [Suspect]

REACTIONS (10)
  - Drug withdrawal syndrome [None]
  - Mood swings [None]
  - Vertigo [None]
  - Confusional state [None]
  - Nausea [None]
  - Feeling abnormal [None]
  - Bradyphrenia [None]
  - Amnesia [None]
  - Job dissatisfaction [None]
  - Activities of daily living impaired [None]
